FAERS Safety Report 6355349-2 (Version None)
Quarter: 2009Q3

REPORT INFORMATION
  Report Type: 
  Country: None (occurrence: None)
  Receive Date: 20090914
  Receipt Date: 20090902
  Transmission Date: 20100115
  Serious: Yes (Hospitalization)
  Sender: FDA-Public Use
  Company Number: FR-PFIZER INC-2009243255

PATIENT
  Age: 51 Year

DRUGS (5)
  1. SUTENT [Suspect]
     Indication: THYROID CANCER METASTATIC
     Dosage: 50 MG, 1X/DAY
     Route: 048
     Dates: start: 20090627
  2. IMODIUM [Concomitant]
     Indication: DIARRHOEA
     Dosage: UNK
     Dates: start: 19930101
  3. LEXOMIL [Concomitant]
     Indication: ANXIETY
     Dosage: 0.25 DF, 3X/DAY
     Dates: start: 20080101
  4. ZOLPIDEM [Concomitant]
     Indication: SLEEP DISORDER
     Dosage: 0.5 DF, 1X/DAY (IN THE EVENING)
     Dates: start: 20080101
  5. LEVOTHYROXINE SODIUM [Concomitant]
     Indication: HYPOTHYROIDISM
     Dosage: 125 UG, 1X/DAY
     Dates: start: 19930101

REACTIONS (4)
  - ABDOMINAL PAIN [None]
  - BACK PAIN [None]
  - CHEST PAIN [None]
  - TUMOUR NECROSIS [None]
